FAERS Safety Report 10261487 (Version 1)
Quarter: 2014Q2

REPORT INFORMATION
  Report Type: Spontaneous
  Country: CH (occurrence: None)
  Receive Date: 20140623
  Receipt Date: 20140623
  Transmission Date: 20141212
  Serious: Yes (Hospitalization)
  Sender: FDA-Public Use
  Company Number: VAL_03178_2014

PATIENT
  Age: 70 Year
  Sex: Male
  Weight: 75.5 kg

DRUGS (11)
  1. BELOC-ZOK [Suspect]
     Indication: HYPERTENSION
  2. BELOC-ZOK [Suspect]
     Indication: CORONARY ARTERY DISEASE
  3. RASILEZ [Suspect]
     Indication: HYPERTENSION
     Dosage: 1 DF PER DAY
     Route: 048
     Dates: start: 2013, end: 20140408
  4. EXFORGE HCT [Suspect]
     Indication: HYPERTENSION
     Dosage: 1 DF
     Route: 048
     Dates: start: 2013
  5. PROGRAF [Suspect]
     Indication: LIVER TRANSPLANT
     Dosage: PER DAY
     Route: 048
  6. ASPIRIN CARDIO [Concomitant]
  7. CRESTOR [Concomitant]
  8. RANEXA [Concomitant]
  9. URSOCHOL [Concomitant]
  10. ESOMEP [Concomitant]
  11. LANTUS [Concomitant]

REACTIONS (4)
  - Bradycardia [None]
  - Renal failure chronic [None]
  - Hypomagnesaemia [None]
  - Hyperkalaemia [None]
